FAERS Safety Report 18637671 (Version 4)
Quarter: 2021Q1

REPORT INFORMATION
  Report Type: Spontaneous
  Country: JP (occurrence: JP)
  Receive Date: 20201219
  Receipt Date: 20210316
  Transmission Date: 20210419
  Serious: Yes (Death, Hospitalization, Other)
  Sender: FDA-Public Use
  Company Number: JP-009507513-2012JPN001683J

PATIENT
  Age: 70 Year
  Sex: Male
  Weight: 53 kg

DRUGS (4)
  1. OXYCODONE [Concomitant]
     Active Substance: OXYCODONE
     Indication: PAIN
     Dosage: 5 MILLIGRAM, BID
     Route: 048
  2. OXINORM [Concomitant]
     Indication: PAIN
     Dosage: UNK, PRN
     Route: 048
  3. KEYTRUDA [Suspect]
     Active Substance: PEMBROLIZUMAB
     Indication: HEAD AND NECK CANCER STAGE IV
     Dosage: 200 MILLIGRAM, Q3W
     Route: 041
     Dates: start: 20200114, end: 20200114
  4. OXINORM [Concomitant]
     Dosage: UNK, PRN
     Route: 048

REACTIONS (2)
  - Malignant neoplasm progression [Fatal]
  - Meningitis [Recovered/Resolved]

NARRATIVE: CASE EVENT DATE: 20200118
